FAERS Safety Report 8173664 (Version 5)
Quarter: 2012Q4

REPORT INFORMATION
  Report Type: 
  Country: US (occurrence: US)
  Receive Date: 20111010
  Receipt Date: 20120914
  Transmission Date: 20130627
  Serious: Yes (Hospitalization, Other)
  Sender: FDA-Public Use
  Company Number: US-PFIZER INC-2011239317

PATIENT
  Age: 58 Year
  Sex: Male
  Weight: 122 kg

DRUGS (8)
  1. ADVIL [Suspect]
     Indication: MYALGIA
     Dosage: 1 tablet every 6 hours
     Route: 048
     Dates: start: 201109, end: 2011
  2. ADVIL [Interacting]
     Indication: BACK PAIN
     Dosage: UNK
  3. ADVIL [Interacting]
     Indication: ARTHRALGIA
     Dosage: 200 mg, 2x/day
     Route: 048
     Dates: start: 201208, end: 201208
  4. ADVIL [Interacting]
     Indication: CHEST PAIN
  5. PROTONIX [Interacting]
     Indication: GASTROOESOPHAGEAL REFLUX DISEASE
     Dosage: 40 mg, UNK
  6. METFORMIN [Concomitant]
     Indication: DIABETES MELLITUS
     Dosage: 800 mg, UNK
  7. METFORMIN [Concomitant]
     Indication: LUNG DISORDER
  8. OXYGEN [Concomitant]
     Indication: DYSPNOEA
     Dosage: UNK

REACTIONS (5)
  - Drug interaction [Recovering/Resolving]
  - Gastric haemorrhage [Recovering/Resolving]
  - Gastric ulcer [Recovering/Resolving]
  - Hypersensitivity [Recovered/Resolved]
  - Abdominal discomfort [Recovered/Resolved]
